FAERS Safety Report 22306155 (Version 2)
Quarter: 2023Q2

REPORT INFORMATION
  Report Type: Report from Study
  Country: US (occurrence: US)
  Receive Date: 20230511
  Receipt Date: 20230611
  Transmission Date: 20230722
  Serious: Yes (Hospitalization, Other)
  Sender: FDA-Public Use
  Company Number: US-ABBVIE-4762150

PATIENT
  Age: 77 Year
  Sex: Male

DRUGS (1)
  1. HUMIRA [Suspect]
     Active Substance: ADALIMUMAB
     Indication: Rheumatoid arthritis
     Dosage: FORM STRENGTH 40 MG
     Route: 058
     Dates: start: 20210630

REACTIONS (9)
  - Fatigue [Unknown]
  - Injection site irritation [Unknown]
  - Cerebral radiation injury [Unknown]
  - Thyroid gland injury [Unknown]
  - Asthenia [Unknown]
  - Neoplasm progression [Unknown]
  - Adrenal gland injury [Unknown]
  - Injection site mass [Unknown]
  - Exposure to radiation [Unknown]

NARRATIVE: CASE EVENT DATE: 20230308
